FAERS Safety Report 21729274 (Version 1)
Quarter: 2022Q4

REPORT INFORMATION
  Report Type: Spontaneous
  Country: US (occurrence: None)
  Receive Date: 20221214
  Receipt Date: 20221214
  Transmission Date: 20230113
  Serious: Yes (Other)
  Sender: FDA-Public Use
  Company Number: None

PATIENT
  Age: 51 Year
  Sex: Female
  Weight: 67.05 kg

DRUGS (1)
  1. HUMIRA [Suspect]
     Active Substance: ADALIMUMAB
     Indication: Rheumatoid arthritis

REACTIONS (6)
  - Hot flush [None]
  - Hyperhidrosis [None]
  - Loss of consciousness [None]
  - Cardiomegaly [None]
  - Cardiac failure chronic [None]
  - Cardiac disorder [None]

NARRATIVE: CASE EVENT DATE: 20221210
